FAERS Safety Report 17584843 (Version 1)
Quarter: 2020Q1

REPORT INFORMATION
  Report Type: Spontaneous
  Country: NL (occurrence: NL)
  Receive Date: 20200326
  Receipt Date: 20200326
  Transmission Date: 20200409
  Serious: Yes (Hospitalization)
  Sender: FDA-Public Use
  Company Number: NL-PFIZER INC-2020127195

PATIENT
  Age: 33 Year
  Sex: Female
  Weight: 88 kg

DRUGS (7)
  1. FLUOROURACIL. [Concomitant]
     Active Substance: FLUOROURACIL
     Dosage: 1 UNK, UNK (INJECTION/INFUSION 1 MG/MG)
  2. HERCEPTIN [Concomitant]
     Active Substance: TRASTUZUMAB
     Dosage: 150 MG, UNK
  3. TRAZIMERA [Suspect]
     Active Substance: TRASTUZUMAB-QYYP
     Indication: BREAST CANCER METASTATIC
     Dosage: 600 MG, EVERY 3 WEEKS
     Dates: start: 20171107
  4. CAPECITABINE. [Concomitant]
     Active Substance: CAPECITABINE
     Dosage: 300 MG, UNK
  5. EPIRUBICIN [Concomitant]
     Active Substance: EPIRUBICIN
     Dosage: 1 UNK, UNK (INJECTION/INFUSION, 1 MG/MG)
  6. PERTUZUMAB. [Concomitant]
     Active Substance: PERTUZUMAB
     Dosage: 30 MG/ML, UNK
  7. DOCETAXEL. [Concomitant]
     Active Substance: DOCETAXEL
     Dosage: 10 MG/ML, UNK

REACTIONS (3)
  - Ascites [Recovering/Resolving]
  - Portal hypertension [Recovering/Resolving]
  - Varices oesophageal [Recovering/Resolving]

NARRATIVE: CASE EVENT DATE: 20190603
